FAERS Safety Report 17057604 (Version 2)
Quarter: 2019Q4

REPORT INFORMATION
  Report Type: Spontaneous
  Country: US (occurrence: US)
  Receive Date: 20191121
  Receipt Date: 20191128
  Transmission Date: 20200122
  Serious: No
  Sender: FDA-Public Use
  Company Number: NVSC2019US042147

PATIENT
  Sex: Male

DRUGS (1)
  1. BUDESONIDE. [Suspect]
     Active Substance: BUDESONIDE
     Indication: PRODUCT USED FOR UNKNOWN INDICATION
     Dosage: UNK
     Route: 055

REACTIONS (3)
  - Drug ineffective [Unknown]
  - Incorrect dose administered [Unknown]
  - Device issue [Unknown]
